FAERS Safety Report 21802401 (Version 2)
Quarter: 2023Q4

REPORT INFORMATION
  Report Type: Spontaneous
  Country: JP (occurrence: JP)
  Receive Date: 20221230
  Receipt Date: 20231205
  Transmission Date: 20240109
  Serious: Yes (Hospitalization)
  Sender: FDA-Public Use
  Company Number: JP-TAKEDA-2022TJP079677

PATIENT
  Age: 7 Decade
  Sex: Female

DRUGS (1)
  1. VPRIV [Suspect]
     Active Substance: VELAGLUCERASE ALFA
     Indication: Gaucher^s disease
     Dosage: 400 INTERNATIONAL UNIT, Q2WEEKS
     Route: 041
     Dates: start: 20221223

REACTIONS (1)
  - Fracture [Unknown]
